FAERS Safety Report 13921414 (Version 1)
Quarter: 2017Q3

REPORT INFORMATION
  Report Type: Spontaneous
  Country: SE (occurrence: SE)
  Receive Date: 20170830
  Receipt Date: 20170830
  Transmission Date: 20171127
  Serious: Yes (Hospitalization)
  Sender: FDA-Public Use
  Company Number: SE-TEVA-799455ACC

PATIENT
  Age: 36 Year
  Sex: Female

DRUGS (5)
  1. AKINETON [Suspect]
     Active Substance: BIPERIDEN HYDROCHLORIDE
     Dates: start: 20170810, end: 20170810
  2. STESOLID [Suspect]
     Active Substance: DIAZEPAM
     Dates: start: 20170810, end: 20170810
  3. THERALEN [Suspect]
     Active Substance: TRIMEPRAZINE
     Dosage: EXTRA TABLETS
     Dates: start: 20170810, end: 20170810
  4. ALVEDON [Suspect]
     Active Substance: ACETAMINOPHEN
     Dates: start: 20170810, end: 20170810
  5. LITHIUM. [Concomitant]
     Active Substance: LITHIUM

REACTIONS (6)
  - Fatigue [Unknown]
  - Intentional self-injury [Unknown]
  - General physical health deterioration [Unknown]
  - Toxicity to various agents [Unknown]
  - Formication [Unknown]
  - Malaise [Unknown]

NARRATIVE: CASE EVENT DATE: 20170810
